FAERS Safety Report 9659266 (Version 3)
Quarter: 2013Q4

REPORT INFORMATION
  Report Type: Spontaneous
  Country: FR (occurrence: FR)
  Receive Date: 20131031
  Receipt Date: 20131122
  Transmission Date: 20140711
  Serious: Yes (Other)
  Sender: FDA-Public Use
  Company Number: FR-MERCK-1309FRA014110

PATIENT
  Age: 66 Year
  Sex: Male
  Weight: 100 kg

DRUGS (12)
  1. JANUMET [Suspect]
     Indication: TYPE 2 DIABETES MELLITUS
     Dosage: 2 DF, QD
     Route: 048
     Dates: start: 20121226, end: 20130911
  2. METFORMIN [Concomitant]
     Dosage: 2000 MG, QD
  3. AMAREL [Concomitant]
     Dosage: 2 MG, QD
  4. ALLOPURINOL [Concomitant]
  5. MOPRAL (OMEPRAZOLE SODIUM) [Concomitant]
  6. CRESTOR [Concomitant]
  7. KARDEGIC [Concomitant]
     Dosage: 160 MG, QD
  8. TAREG [Concomitant]
  9. BRILIQUE [Concomitant]
     Dosage: 90 MG,QD
  10. ALDACTONE TABLETS [Concomitant]
     Dosage: 1 DF, QD
  11. CARDENSIEL [Concomitant]
     Dosage: 1 DF, QD
  12. COVERSYL (PERINDOPRIL ARGININE) [Concomitant]
     Dosage: 5 MG, QD

REACTIONS (1)
  - Pancreatitis [Recovered/Resolved]
